FAERS Safety Report 10187365 (Version 1)
Quarter: 2014Q2

REPORT INFORMATION
  Report Type: Spontaneous
  Country: US (occurrence: None)
  Receive Date: 20140521
  Receipt Date: 20140521
  Transmission Date: 20141212
  Serious: No
  Sender: FDA-Public Use
  Company Number: None

PATIENT
  Age: 48 Year
  Sex: Female

DRUGS (2)
  1. L-ASPARAGINASE [Suspect]
     Dates: start: 20120829, end: 20120829
  2. VINCRISTINE [Suspect]
     Dates: start: 20120826, end: 20120909

REACTIONS (5)
  - Drug-induced liver injury [None]
  - Hepatic steatosis [None]
  - Hepatotoxicity [None]
  - Hepatic failure [None]
  - Multi-organ failure [None]
